FAERS Safety Report 6161118-9 (Version None)
Quarter: 2009Q2

REPORT INFORMATION
  Report Type: 
  Country: None (occurrence: None)
  Receive Date: 20090421
  Receipt Date: 20080513
  Transmission Date: 20091009
  Serious: Yes (Hospitalization)
  Sender: FDA-Public Use
  Company Number: US-ASTRAZENECA-2008UW04630

PATIENT
  Age: 506 Month
  Sex: Female

DRUGS (8)
  1. SEROQUEL [Suspect]
     Indication: BIPOLAR DISORDER
     Route: 048
     Dates: start: 20050801
  2. SEROQUEL [Suspect]
     Indication: SCHIZOPHRENIA
     Route: 048
     Dates: start: 20050801
  3. SEROQUEL [Suspect]
     Dosage: 200 MG TO 300 MG
     Route: 048
  4. SEROQUEL [Suspect]
     Dosage: 200 MG TO 300 MG
     Route: 048
  5. RISPERDAL [Concomitant]
  6. TOPAMAX [Concomitant]
  7. BUSPAR [Concomitant]
  8. METFORMIN HCL [Concomitant]

REACTIONS (12)
  - DIABETES MELLITUS [None]
  - DRUG ABUSE [None]
  - DYSFUNCTIONAL UTERINE BLEEDING [None]
  - ELECTROCARDIOGRAM ABNORMAL [None]
  - GLOMERULAR FILTRATION RATE DECREASED [None]
  - HIGH DENSITY LIPOPROTEIN DECREASED [None]
  - IRON DEFICIENCY ANAEMIA [None]
  - LOW DENSITY LIPOPROTEIN INCREASED [None]
  - METABOLIC ACIDOSIS [None]
  - OBESITY [None]
  - PSYCHOTIC DISORDER [None]
  - SCHIZOAFFECTIVE DISORDER [None]
